FAERS Safety Report 26107027 (Version 2)
Quarter: 2025Q4

REPORT INFORMATION
  Report Type: Spontaneous
  Country: GB (occurrence: GB)
  Receive Date: 20251201
  Receipt Date: 20251223
  Transmission Date: 20260117
  Serious: Yes (Life-Threatening, Hospitalization, Other)
  Sender: DR REDDYS
  Company Number: GB-UKI-GBR/2025/03/004653

PATIENT
  Age: 68 Year
  Sex: Female
  Weight: 114 kg

DRUGS (5)
  1. PREGABALIN [Suspect]
     Active Substance: PREGABALIN
     Indication: Fibromyalgia
     Route: 065
     Dates: start: 20241121, end: 20250224
  2. Gaviscon AD [Concomitant]
     Indication: Product used for unknown indication
     Route: 065
  3. SERTRALINE [Concomitant]
     Active Substance: SERTRALINE HYDROCHLORIDE
     Indication: Product used for unknown indication
     Route: 065
  4. COCODAMOL [Concomitant]
     Active Substance: ACETAMINOPHEN\CODEINE PHOSPHATE
     Indication: Product used for unknown indication
     Dosage: 30/500 EFF
     Route: 065
  5. HYLO-FORTE 0.2 [Concomitant]
     Indication: Product used for unknown indication
     Dosage: 0.2 %
     Route: 065

REACTIONS (3)
  - Hyperlipasaemia [Unknown]
  - Pain [Unknown]
  - Pancreatitis acute [Recovered/Resolved]

NARRATIVE: CASE EVENT DATE: 20250220
